FAERS Safety Report 18373046 (Version 1)
Quarter: 2020Q4

REPORT INFORMATION
  Report Type: Spontaneous
  Country: US (occurrence: US)
  Receive Date: 20201012
  Receipt Date: 20201012
  Transmission Date: 20210114
  Serious: No
  Sender: FDA-Public Use
  Company Number: US-BAYER-2020-217128

PATIENT
  Sex: Male

DRUGS (8)
  1. BASAGLAR [Concomitant]
     Active Substance: INSULIN GLARGINE
  2. JARDIANCE [Concomitant]
     Active Substance: EMPAGLIFLOZIN
  3. MAGNESIUM [Concomitant]
     Active Substance: MAGNESIUM
  4. HYDROCODONE BITARTRATE AND ACETAMINOPHEN [Concomitant]
     Active Substance: ACETAMINOPHEN\HYDROCODONE BITARTRATE
  5. ALEVE [Suspect]
     Active Substance: NAPROXEN SODIUM
     Indication: PAIN
     Dosage: UNK
  6. DAILY IMMUNE PROBIOTIC [Concomitant]
  7. JANUVIA [Concomitant]
     Active Substance: SITAGLIPTIN PHOSPHATE
  8. POTASSIUM [Concomitant]
     Active Substance: POTASSIUM

REACTIONS (2)
  - Abdominal pain upper [Unknown]
  - Feeling abnormal [Unknown]
